FAERS Safety Report 19162055 (Version 3)
Quarter: 2021Q3

REPORT INFORMATION
  Report Type: Spontaneous
  Country: US (occurrence: US)
  Receive Date: 20210421
  Receipt Date: 20210801
  Transmission Date: 20211014
  Serious: No
  Sender: FDA-Public Use
  Company Number: US-AMGEN INC.-USASP2021058388

PATIENT
  Age: 73 Year
  Sex: Male

DRUGS (2)
  1. AIMOVIG [Suspect]
     Active Substance: ERENUMAB-AOOE
     Dosage: 140 MILLIGRAM, QMO
     Route: 065
  2. AIMOVIG [Suspect]
     Active Substance: ERENUMAB-AOOE
     Indication: MIGRAINE PROPHYLAXIS
     Dosage: 70 MILLIGRAM, QMO
     Route: 065

REACTIONS (11)
  - Therapeutic product effect decreased [Unknown]
  - Pain in extremity [Unknown]
  - Weight decreased [Unknown]
  - Cough [Unknown]
  - Device difficult to use [Unknown]
  - Decreased appetite [Unknown]
  - Contusion [Unknown]
  - Wrong technique in product usage process [Unknown]
  - Nausea [Unknown]
  - Fatigue [Unknown]
  - Pain [Unknown]

NARRATIVE: CASE EVENT DATE: 20210415
